FAERS Safety Report 12419492 (Version 1)
Quarter: 2016Q2

REPORT INFORMATION
  Report Type: Spontaneous
  Country: US (occurrence: US)
  Receive Date: 20160531
  Receipt Date: 20160531
  Transmission Date: 20160815
  Serious: Yes (Other)
  Sender: FDA-Public Use
  Company Number: US-ALKERMES INC.-ALK-2016-001358

PATIENT
  Age: 21 Year
  Sex: Male
  Weight: 63.49 kg

DRUGS (4)
  1. VISTARIL [Concomitant]
     Active Substance: HYDROXYZINE PAMOATE
     Indication: PRODUCT USED FOR UNKNOWN INDICATION
     Dosage: UNK
     Route: 065
  2. SUBOXONE [Concomitant]
     Active Substance: BUPRENORPHINE HYDROCHLORIDE\NALOXONE HYDROCHLORIDE
     Indication: PRODUCT USED FOR UNKNOWN INDICATION
     Dosage: UNK
     Route: 065
     Dates: start: 20160513
  3. LEXAPRO [Concomitant]
     Active Substance: ESCITALOPRAM OXALATE
     Indication: DEPRESSION
     Dosage: 10 MG, UNK
     Route: 065
  4. VIVITROL [Suspect]
     Active Substance: NALTREXONE
     Indication: DRUG DEPENDENCE
     Dosage: 380 MG, QMO
     Route: 030
     Dates: start: 20160511

REACTIONS (6)
  - Imprisonment [Not Recovered/Not Resolved]
  - Withdrawal syndrome [Unknown]
  - Aggression [Recovered/Resolved]
  - Drug abuse [Unknown]
  - Alcohol use [Unknown]
  - Drug dependence [Unknown]

NARRATIVE: CASE EVENT DATE: 201605
